FAERS Safety Report 18717522 (Version 1)
Quarter: 2021Q1

REPORT INFORMATION
  Report Type: Spontaneous
  Country: US (occurrence: US)
  Receive Date: 20210108
  Receipt Date: 20210108
  Transmission Date: 20210419
  Serious: Yes (Other)
  Sender: FDA-Public Use
  Company Number: US-TEVA-2020-US-1865122

PATIENT
  Age: 63 Year
  Sex: Female

DRUGS (10)
  1. FAMOTIDINE. [Concomitant]
     Active Substance: FAMOTIDINE
     Route: 048
  2. MECLIZINE HCL [Concomitant]
     Active Substance: MECLIZINE HYDROCHLORIDE
     Route: 048
  3. HYDROCHLOROTHIAZIDE 25 MG [Concomitant]
     Active Substance: HYDROCHLOROTHIAZIDE
     Route: 048
  4. MULTIVITAMIN ADULTS [Concomitant]
     Route: 048
  5. ONDANSETRON HCL [Concomitant]
     Active Substance: ONDANSETRON HYDROCHLORIDE
     Route: 048
  6. AUSTEDO [Suspect]
     Active Substance: DEUTETRABENAZINE
     Indication: TARDIVE DYSKINESIA
     Dosage: 12 MILLIGRAM DAILY;
     Route: 048
     Dates: start: 20201217
  7. TRIFLUOPERAZINE HCL [Concomitant]
     Route: 048
  8. BUTALBITAL?ACETAMINOPHEN [Concomitant]
     Dosage: 25?325 MG
     Route: 048
  9. LINZESS [Concomitant]
     Active Substance: LINACLOTIDE
     Route: 048
  10. AMLODIPINE BESYLATE. [Concomitant]
     Active Substance: AMLODIPINE BESYLATE
     Route: 048

REACTIONS (6)
  - Asthenia [Unknown]
  - Headache [Unknown]
  - Nausea [Unknown]
  - Dizziness [Unknown]
  - Fatigue [Unknown]
  - Hypertension [Unknown]
